FAERS Safety Report 4404232-8 (Version None)
Quarter: 2004Q3

REPORT INFORMATION
  Report Type: 
  Country: None (occurrence: None)
  Receive Date: 20040721
  Receipt Date: 20040721
  Transmission Date: 20050211
  Serious: Yes (Hospitalization)
  Sender: FDA-Public Use
  Company Number: None

PATIENT
  Age: 78 Year
  Sex: Male
  Weight: 101.6 kg

DRUGS (13)
  1. COUMADIN [Suspect]
  2. LISINOPRIL [Concomitant]
  3. AMIODARONE HCL (GENEVA) [Concomitant]
  4. SPIRONOLACTONE [Concomitant]
  5. LOPERAMIDE HCL [Concomitant]
  6. METOPROLOL TARTRATE [Concomitant]
  7. PROBENECID [Concomitant]
  8. NITROGLYCERIN [Concomitant]
  9. OMEPRAZOLE [Concomitant]
  10. ACETAMINOPHEN [Concomitant]
  11. FUROSEMIDE [Concomitant]
  12. MULTI-VITAMIN [Concomitant]
  13. BRIMONIDINE TARTRATE [Concomitant]

REACTIONS (2)
  - DRUG LEVEL ABOVE THERAPEUTIC [None]
  - GASTROINTESTINAL HAEMORRHAGE [None]
